FAERS Safety Report 9375452 (Version 2)
Quarter: 2013Q3

REPORT INFORMATION
  Report Type: Report from Study
  Country: ES (occurrence: ES)
  Receive Date: 20130628
  Receipt Date: 20130715
  Transmission Date: 20140515
  Serious: Yes (Hospitalization)
  Sender: FDA-Public Use
  Company Number: ES-GLAXOSMITHKLINE-B0889103B

PATIENT
  Age: 75 Year
  Sex: Female
  Weight: 45 kg

DRUGS (2)
  1. DABRAFENIB [Suspect]
     Indication: METASTATIC MALIGNANT MELANOMA
     Dosage: 150MG TWICE PER DAY
     Route: 048
     Dates: start: 20130319
  2. LYRICA [Suspect]
     Indication: NEURALGIA
     Dosage: 75MG TWICE PER DAY
     Route: 048
     Dates: start: 20130502, end: 20130518

REACTIONS (3)
  - Skin infection [Recovered/Resolved]
  - Hyponatraemia [Recovered/Resolved]
  - Jugular vein thrombosis [Recovering/Resolving]
